FAERS Safety Report 24713793 (Version 1)
Quarter: 2024Q4

REPORT INFORMATION
  Report Type: Spontaneous
  Country: FR (occurrence: FR)
  Receive Date: 20241209
  Receipt Date: 20241209
  Transmission Date: 20250115
  Serious: Yes (Hospitalization, Other)
  Sender: B BRAUN
  Company Number: FR-B.Braun Medical Inc.-2166756

PATIENT
  Age: 68 Year
  Sex: Male
  Weight: 172 kg

DRUGS (10)
  1. METRONIDAZOLE [Suspect]
     Active Substance: METRONIDAZOLE
     Indication: Pneumonia aspiration
     Dates: start: 20240814, end: 20240820
  2. CEFOTAXIME [Suspect]
     Active Substance: CEFOTAXIME SODIUM
  3. Loxen [Concomitant]
  4. AMIODARONE [Concomitant]
     Active Substance: AMIODARONE
  5. AMINO ACIDS\DEXTROSE\ELECTROLYTES NOS\SOYBEAN OIL [Concomitant]
     Active Substance: AMINO ACIDS\DEXTROSE\ELECTROLYTES NOS\SOYBEAN OIL
  6. NEFOPAM [Concomitant]
     Active Substance: NEFOPAM
  7. ACETAMINOPHEN [Concomitant]
     Active Substance: ACETAMINOPHEN
  8. CALCIUM POLYSTYRENE SULFONATE [Concomitant]
     Active Substance: CALCIUM POLYSTYRENE SULFONATE
  9. TERBUTALINE [Concomitant]
     Active Substance: TERBUTALINE
  10. FUROSEMIDE [Concomitant]
     Active Substance: FUROSEMIDE

REACTIONS (1)
  - Agranulocytosis [Recovered/Resolved]
